FAERS Safety Report 9475328 (Version 1)
Quarter: 2013Q3

REPORT INFORMATION
  Report Type: Spontaneous
  Country: US (occurrence: None)
  Receive Date: 20130821
  Receipt Date: 20130821
  Transmission Date: 20140515
  Serious: Yes (Hospitalization)
  Sender: FDA-Public Use
  Company Number: 13-100

PATIENT
  Age: 38 Year
  Sex: Female

DRUGS (3)
  1. DOCUSATE SODIUM\SENNOSIDES [Suspect]
     Route: 048
     Dates: start: 20130730, end: 20130809
  2. LOVASTATIN [Concomitant]
  3. NOVOLOG [Concomitant]

REACTIONS (4)
  - Urticaria [None]
  - Rash [None]
  - Rash [None]
  - Pruritus [None]
